FAERS Safety Report 25478211 (Version 3)
Quarter: 2025Q4

REPORT INFORMATION
  Report Type: Report from Study
  Country: EU (occurrence: EU)
  Receive Date: 20250625
  Receipt Date: 20251115
  Transmission Date: 20260117
  Serious: Yes (Life-Threatening, Other)
  Sender: ALEXION PHARMACEUTICALS
  Company Number: EU-ASTRAZENECA-202506GLO019860DE

PATIENT
  Age: 41 Year
  Sex: Male

DRUGS (13)
  1. DURVALUMAB [Suspect]
     Active Substance: DURVALUMAB
     Indication: Non-small cell lung cancer
     Dosage: UNK, Q3W
     Dates: start: 20250512, end: 20250610
  2. TREMELIMUMAB [Suspect]
     Active Substance: TREMELIMUMAB
     Indication: Non-small cell lung cancer
     Dosage: UNK, Q3W
     Dates: start: 20250512, end: 20250610
  3. CARBOPLATIN [Suspect]
     Active Substance: CARBOPLATIN
     Dosage: UNK
     Route: 065
  4. PEMETREXED [Suspect]
     Active Substance: PEMETREXED
     Dosage: UNK
  5. Akynzeo [Concomitant]
     Indication: Prophylaxis
     Dosage: 300 MILLIGRAM, Q3W
     Dates: start: 20250512
  6. APIXABAN [Concomitant]
     Active Substance: APIXABAN
     Dosage: 5 MILLIGRAM, BID
     Dates: start: 20250401
  7. DEXAMETHASONE [Concomitant]
     Active Substance: DEXAMETHASONE
     Indication: Metastases to central nervous system
     Dosage: 4 MILLIGRAM, TID
     Dates: start: 20250401
  8. DEXAMETHASONE [Concomitant]
     Active Substance: DEXAMETHASONE
     Indication: Prophylaxis
     Dosage: 12 MILLIGRAM, Q3W
     Dates: start: 20250512
  9. FOLIC ACID [Concomitant]
     Active Substance: FOLIC ACID
     Indication: Prophylaxis
     Dosage: 5 MILLIGRAM, QD
     Dates: start: 20250401
  10. METAMIZOL [Concomitant]
     Active Substance: METAMIZOLE SODIUM
     Dosage: 500 MILLIGRAM, QID
     Dates: start: 20250501
  11. METOPROLOL [Concomitant]
     Active Substance: METOPROLOL
     Dosage: 95 MILLIGRAM, BID
     Dates: start: 20250401
  12. OXYCODONE [Concomitant]
     Active Substance: OXYCODONE
     Dosage: 5 MG UNKNOWN
  13. PANTOPRAZOLE [Concomitant]
     Active Substance: PANTOPRAZOLE
     Indication: Prophylaxis
     Dosage: 40 MILLIGRAM, BID
     Dates: start: 20250401

REACTIONS (2)
  - Pneumocystis jirovecii pneumonia [Not Recovered/Not Resolved]
  - Pericardial effusion [Not Recovered/Not Resolved]

NARRATIVE: CASE EVENT DATE: 20250606
